FAERS Safety Report 5533228-8 (Version None)
Quarter: 2007Q4

REPORT INFORMATION
  Report Type: 
  Country: None (occurrence: None)
  Receive Date: 20071130
  Receipt Date: 20071130
  Transmission Date: 20080405
  Serious: Yes (Hospitalization)
  Sender: FDA-Public Use
  Company Number: None

PATIENT
  Sex: Male
  Weight: 89.2 kg

DRUGS (8)
  1. CYTARABINE [Suspect]
     Dosage: 1400 MG
  2. DAUNORUBICIN HCL [Suspect]
     Dosage: 270 MG
  3. MYLOTARG [Suspect]
     Dosage: 12 MG
  4. ALLOPOURINOL [Concomitant]
  5. CEFTAZIDIME [Concomitant]
  6. FLUCONAZOLE [Concomitant]
  7. TAZOCIN [Concomitant]
  8. VANCOMYCIN HCL [Concomitant]

REACTIONS (11)
  - DIARRHOEA [None]
  - ERYTHEMA [None]
  - LEUKAEMIA [None]
  - PYREXIA [None]
  - RASH GENERALISED [None]
  - RASH MACULO-PAPULAR [None]
  - RASH PRURITIC [None]
  - RASH PUSTULAR [None]
  - SKIN HAEMORRHAGE [None]
  - SKIN INFECTION [None]
  - SKIN INFLAMMATION [None]
